FAERS Safety Report 9192638 (Version 1)
Quarter: 2013Q1

REPORT INFORMATION
  Report Type: Spontaneous
  Country: US (occurrence: US)
  Receive Date: 20130327
  Receipt Date: 20130327
  Transmission Date: 20140127
  Serious: Yes (Other)
  Sender: FDA-Public Use
  Company Number: US-JNJFOC-20130309678

PATIENT
  Age: 50 Year
  Sex: Female
  Weight: 81.65 kg

DRUGS (2)
  1. TYLENOL SINUS CONGESTION AND PAIN [Suspect]
     Indication: CHRONIC SINUSITIS
     Route: 048
     Dates: start: 201002
  2. SEPTRA [Concomitant]
     Indication: SINUSITIS
     Route: 065
     Dates: start: 201003

REACTIONS (1)
  - Procedural haemorrhage [Recovered/Resolved]
